FAERS Safety Report 21044043 (Version 1)
Quarter: 2022Q3

REPORT INFORMATION
  Report Type: Spontaneous
  Country: US (occurrence: None)
  Receive Date: 20220703
  Receipt Date: 20220703
  Transmission Date: 20221026
  Serious: Yes (unspecified)
  Sender: FDA-Public Use
  Company Number: None

PATIENT
  Age: 70 Year
  Sex: Female
  Weight: 63 kg

DRUGS (8)
  1. INFLIXIMAB [Suspect]
     Active Substance: INFLIXIMAB
     Indication: Crohn^s disease
     Dosage: OTHER FREQUENCY : 8 WEEKS;?
     Route: 042
     Dates: start: 20211101, end: 20220606
  2. ASPIRIN [Concomitant]
     Active Substance: ASPIRIN
  3. OMEPRAZOLE [Concomitant]
     Active Substance: OMEPRAZOLE
  4. Levothyrine [Concomitant]
  5. Amolpine [Concomitant]
  6. AMBIEN [Concomitant]
     Active Substance: ZOLPIDEM TARTRATE
  7. VITAMIN B12 [Concomitant]
     Active Substance: CYANOCOBALAMIN
  8. BENEFIBER [Concomitant]
     Active Substance: STARCH, WHEAT

REACTIONS (4)
  - Urinary tract infection [None]
  - Arthralgia [None]
  - Myalgia [None]
  - Histamine abnormal [None]

NARRATIVE: CASE EVENT DATE: 20220620
